FAERS Safety Report 7420675-2 (Version None)
Quarter: 2011Q2

REPORT INFORMATION
  Report Type: 
  Country: None (occurrence: None)
  Receive Date: 20110418
  Receipt Date: 20101014
  Transmission Date: 20111010
  Serious: Yes (Hospitalization, Other)
  Sender: FDA-Public Use
  Company Number: US-BAYER-201023630NA

PATIENT
  Age: 23 Year
  Sex: Female
  Weight: 85 kg

DRUGS (3)
  1. YASMIN [Suspect]
     Indication: ORAL CONTRACEPTION
     Dosage: UNK UNK, QD
     Route: 048
     Dates: start: 20070201, end: 20080601
  2. HYDROCODONE BITARTRATE [Concomitant]
     Dosage: 10/650MG
     Route: 048
     Dates: start: 20070602
  3. DICYCLOMINE [Concomitant]
     Dosage: 10 MG, UNK

REACTIONS (3)
  - CHOLECYSTITIS CHRONIC [None]
  - BILIARY DYSKINESIA [None]
  - GALLBLADDER DISORDER [None]
